FAERS Safety Report 8902380 (Version 1)
Quarter: 2012Q4

REPORT INFORMATION
  Report Type: 
  Country: IE (occurrence: IE)
  Receive Date: 20121112
  Receipt Date: 20121112
  Transmission Date: 20130627
  Serious: Yes (Other)
  Sender: FDA-Public Use
  Company Number: IE-PFIZER INC-2012277530

PATIENT
  Age: 49 Year
  Sex: Female

DRUGS (2)
  1. DEXAMETHASONE SODIUM PHOSPHATE [Suspect]
     Indication: PROLACTINOMA
     Dosage: cumulative dose of 65 mg
  2. CABERGOLINE [Interacting]
     Indication: PROLACTINOMA
     Dosage: 6 mg, weekly

REACTIONS (3)
  - Osteonecrosis [Unknown]
  - Drug interaction [Unknown]
  - Drug ineffective [Unknown]
